FAERS Safety Report 6950928-3 (Version None)
Quarter: 2010Q3

REPORT INFORMATION
  Report Type: 
  Country: None (occurrence: None)
  Receive Date: 20100828
  Receipt Date: 20100324
  Transmission Date: 20110219
  Serious: No
  Sender: FDA-Public Use
  Company Number: US-ABBOTT-10P-163-0630328-00

PATIENT
  Age: 61 Year
  Sex: Male
  Weight: 108.96 kg

DRUGS (11)
  1. NIASPAN [Suspect]
     Indication: BLOOD CHOLESTEROL INCREASED
     Dates: start: 20060101
  2. RAMIPRIL [Concomitant]
     Indication: HYPERTENSION
  3. EPLERENONE [Concomitant]
     Indication: HYPERTENSION
  4. METOPROLOL [Concomitant]
     Indication: HYPERTENSION
  5. GEMFIBROZIL [Concomitant]
     Indication: HYPERTENSION
  6. AMLODIPINE [Concomitant]
     Indication: HYPERTENSION
  7. SIMVASTATIN [Concomitant]
     Indication: BLOOD CHOLESTEROL INCREASED
  8. ACTOS [Concomitant]
     Indication: TYPE 2 DIABETES MELLITUS
  9. SINGULAIR [Concomitant]
     Indication: HYPERSENSITIVITY
  10. SINGULAIR [Concomitant]
     Indication: ASTHMA
  11. RESCUE [Concomitant]
     Indication: ASTHMA
     Dosage: INHALER AS NEEDED
     Route: 055

REACTIONS (3)
  - FLUSHING [None]
  - PARAESTHESIA [None]
  - SENSORY DISTURBANCE [None]
